FAERS Safety Report 21194970 (Version 2)
Quarter: 2022Q3

REPORT INFORMATION
  Report Type: Report from Study
  Country: AU (occurrence: AU)
  Receive Date: 20220810
  Receipt Date: 20220817
  Transmission Date: 20221027
  Serious: Yes (Hospitalization, Other)
  Sender: FDA-Public Use
  Company Number: AU-PFM-2022-06165

PATIENT
  Age: 76 Year
  Sex: Male

DRUGS (8)
  1. PALBOCICLIB [Suspect]
     Active Substance: PALBOCICLIB
     Indication: Metastatic malignant melanoma
     Dosage: UNK, CYCLIC (CYCLE 1)
     Dates: start: 20210525
  2. PALBOCICLIB [Suspect]
     Active Substance: PALBOCICLIB
     Dosage: 75 MG, CYCLIC (CYCLE 15)
     Dates: start: 20220712, end: 20220723
  3. BINIMETINIB [Suspect]
     Active Substance: BINIMETINIB
     Indication: Metastatic malignant melanoma
     Dosage: UNK, CYCLIC (CYCLE 1)
     Dates: start: 20210525
  4. BINIMETINIB [Suspect]
     Active Substance: BINIMETINIB
     Dosage: 30 MG, CYCLIC (CYCLE 15)
     Dates: start: 20220712, end: 20220723
  5. ENCORAFENIB [Suspect]
     Active Substance: ENCORAFENIB
     Indication: Metastatic malignant melanoma
     Dosage: UNK, CYCLIC (CYCLE 1)
     Dates: start: 20210525
  6. ENCORAFENIB [Suspect]
     Active Substance: ENCORAFENIB
     Dosage: 300 MG, CYCLIC (CYCLE 15)
     Dates: start: 20220712, end: 20220723
  7. DUTASTERIDE\TAMSULOSIN HYDROCHLORIDE [Concomitant]
     Active Substance: DUTASTERIDE\TAMSULOSIN HYDROCHLORIDE
     Indication: Benign prostatic hyperplasia
     Dosage: 0.5MG/0.4MG, 1X/DAY
     Route: 048
     Dates: start: 20220301
  8. TEMAZEPAM [Concomitant]
     Active Substance: TEMAZEPAM
     Indication: Insomnia
     Dosage: 5 MG, 1X/DAY
     Route: 048
     Dates: start: 20220322

REACTIONS (1)
  - Jaundice cholestatic [Recovering/Resolving]

NARRATIVE: CASE EVENT DATE: 20220730
